FAERS Safety Report 16916012 (Version 2)
Quarter: 2019Q4

REPORT INFORMATION
  Report Type: Spontaneous
  Country: US (occurrence: US)
  Receive Date: 20191014
  Receipt Date: 20191025
  Transmission Date: 20200122
  Serious: Yes (Death, Hospitalization)
  Sender: FDA-Public Use
  Company Number: US-NOVOPROD-689342

PATIENT
  Age: 81 Year
  Sex: Female

DRUGS (2)
  1. OZEMPIC [Suspect]
     Active Substance: SEMAGLUTIDE
     Indication: PRODUCT USED FOR UNKNOWN INDICATION
     Dosage: 0.5 MG
     Route: 058
     Dates: start: 20190315, end: 20190326
  2. OZEMPIC [Suspect]
     Active Substance: SEMAGLUTIDE
     Dosage: 1 MG
     Route: 058
     Dates: start: 20190326, end: 2019

REACTIONS (10)
  - Faeces discoloured [Not Recovered/Not Resolved]
  - Asthenia [Not Recovered/Not Resolved]
  - Bradycardia [Fatal]
  - Coronary artery disease [Fatal]
  - Impaired quality of life [Not Recovered/Not Resolved]
  - Cardiac arrest [Fatal]
  - Decreased appetite [Not Recovered/Not Resolved]
  - Nausea [Not Recovered/Not Resolved]
  - Inappropriate schedule of product administration [Unknown]
  - Inappropriate schedule of product administration [Unknown]

NARRATIVE: CASE EVENT DATE: 2019
